FAERS Safety Report 13256259 (Version 1)
Quarter: 2017Q1

REPORT INFORMATION
  Report Type: Spontaneous
  Country: NL (occurrence: NL)
  Receive Date: 20170221
  Receipt Date: 20170221
  Transmission Date: 20170428
  Serious: Yes (Death, Other)
  Sender: FDA-Public Use
  Company Number: NL-009507513-1702NLD008671

PATIENT
  Sex: Male

DRUGS (4)
  1. ISOTRETINOIN [Suspect]
     Active Substance: ISOTRETINOIN
     Dosage: UNK
  2. DUTASTERIDE. [Suspect]
     Active Substance: DUTASTERIDE
     Dosage: UNK
  3. FINASTERIDE. [Suspect]
     Active Substance: FINASTERIDE
     Dosage: UNK
     Route: 048
  4. SAW PALMETTO [Suspect]
     Active Substance: SAW PALMETTO
     Dosage: UNK

REACTIONS (1)
  - Drug withdrawal syndrome [Fatal]
